FAERS Safety Report 4311995-9 (Version None)
Quarter: 2004Q1

REPORT INFORMATION
  Report Type: 
  Country: None (occurrence: None)
  Receive Date: 20040305
  Receipt Date: 20031017
  Transmission Date: 20041129
  Serious: No
  Sender: FDA-Public Use
  Company Number: US-GLAXOSMITHKLINE-A0430689A

PATIENT
  Age: 65 Year
  Sex: Female

DRUGS (6)
  1. REQUIP [Suspect]
     Indication: PARKINSON'S DISEASE
     Dosage: .5MG THREE TIMES PER DAY
     Route: 048
     Dates: start: 20030817
  2. ACIPHEX [Concomitant]
  3. LIPITOR [Concomitant]
  4. MULTIVITAMIN [Concomitant]
  5. VITAMIN E [Concomitant]
  6. CALCIUM [Concomitant]

REACTIONS (3)
  - COLD SWEAT [None]
  - HEAD DISCOMFORT [None]
  - NAUSEA [None]
